FAERS Safety Report 9319321 (Version 1)
Quarter: 2013Q2

REPORT INFORMATION
  Report Type: Spontaneous
  Country: US (occurrence: None)
  Receive Date: 20130524
  Receipt Date: 20130524
  Transmission Date: 20140414
  Serious: Yes (Other)
  Sender: FDA-Public Use
  Company Number: 001535934A

PATIENT
  Age: 15 Year
  Sex: Male

DRUGS (3)
  1. PROACTIV REPAIRING TREATMENT [Suspect]
     Indication: ACNE
     Dosage: ONCE DAILY DERMAL
     Dates: start: 20120802, end: 20120803
  2. MULTIVITAMINS [Concomitant]
  3. VIJA OIL SUPPLEMENT [Concomitant]

REACTIONS (2)
  - Hypersensitivity [None]
  - Dyspnoea [None]
